FAERS Safety Report 18470161 (Version 3)
Quarter: 2021Q3

REPORT INFORMATION
  Report Type: Report from Study
  Country: DE (occurrence: DE)
  Receive Date: 20201105
  Receipt Date: 20210914
  Transmission Date: 20211014
  Serious: Yes (Hospitalization)
  Sender: FDA-Public Use
  Company Number: DE-TAKEDA-DE202025606

PATIENT
  Age: 2 Year
  Sex: Male
  Weight: 18 kg

DRUGS (4)
  1. IDURSULFASE [Suspect]
     Active Substance: IDURSULFASE
     Dosage: 2 DOSAGE FORM, 1/WEEK
     Route: 042
     Dates: start: 20201021, end: 20201021
  2. IDURSULFASE [Suspect]
     Active Substance: IDURSULFASE
     Indication: MUCOPOLYSACCHARIDOSIS II
     Dosage: 2 DOSAGE FORM, 1X/WEEK
     Route: 042
     Dates: start: 20200730
  3. IDURSULFASE [Suspect]
     Active Substance: IDURSULFASE
     Dosage: 12 MILLIGRAM, 1/WEEK
     Route: 042
  4. IDURSULFASE [Suspect]
     Active Substance: IDURSULFASE
     Dosage: 2 DOSAGE FORM, 1X/WEEK
     Route: 042
     Dates: start: 20201007, end: 20201007

REACTIONS (11)
  - Musculoskeletal stiffness [Recovered/Resolved]
  - Vomiting [Recovered/Resolved]
  - Pyrexia [Recovered/Resolved]
  - Nystagmus [Not Recovered/Not Resolved]
  - Diarrhoea [Recovered/Resolved]
  - Strabismus [Not Recovered/Not Resolved]
  - Posture abnormal [Not Recovered/Not Resolved]
  - Ear infection [Recovering/Resolving]
  - Rash [Recovered/Resolved]
  - Hypermetropia [Not Recovered/Not Resolved]
  - Blister [Recovering/Resolving]

NARRATIVE: CASE EVENT DATE: 20200806
